FAERS Safety Report 17083822 (Version 1)
Quarter: 2019Q4

REPORT INFORMATION
  Report Type: Spontaneous
  Country: IL (occurrence: IL)
  Receive Date: 20191127
  Receipt Date: 20191127
  Transmission Date: 20200122
  Serious: Yes (Death, Other)
  Sender: FDA-Public Use
  Company Number: IL-ASTRAZENECA-2019SF68353

PATIENT
  Age: 63 Year
  Sex: Male

DRUGS (1)
  1. IMFINZI [Suspect]
     Active Substance: DURVALUMAB
     Dosage: UNKNOWN
     Route: 042

REACTIONS (3)
  - Death [Fatal]
  - Metastases to liver [Unknown]
  - Malignant neoplasm progression [Unknown]
